FAERS Safety Report 8392831-0 (Version None)
Quarter: 2012Q2

REPORT INFORMATION
  Report Type: 
  Country: None (occurrence: None)
  Receive Date: 20120529
  Receipt Date: 20120522
  Transmission Date: 20120825
  Serious: Yes (Other)
  Sender: FDA-Public Use
  Company Number: US-PFIZER INC-2012123998

PATIENT
  Sex: Female

DRUGS (6)
  1. FLEXERIL [Concomitant]
     Dosage: 10 MG, UNK
  2. PROZAC [Concomitant]
     Dosage: 40 MG, UNK
  3. NEURONTIN [Suspect]
     Dosage: 300 MG, UNK
  4. IBUPROFEN [Concomitant]
     Dosage: 800 MG, UNK
  5. TRAMADOL [Concomitant]
     Dosage: 50 MG, UNK
  6. LORTAB [Concomitant]
     Dosage: 7.5/500 MG, UNK

REACTIONS (7)
  - RHINITIS ALLERGIC [None]
  - INSOMNIA [None]
  - HORMONE REPLACEMENT THERAPY [None]
  - FIBROMYALGIA [None]
  - DEPRESSION [None]
  - MYALGIA [None]
  - INTERVERTEBRAL DISC DISPLACEMENT [None]
